FAERS Safety Report 11219702 (Version 1)
Quarter: 2015Q2

REPORT INFORMATION
  Report Type: Report from Study
  Country: FR (occurrence: FR)
  Receive Date: 20150625
  Receipt Date: 20150625
  Transmission Date: 20150821
  Serious: Yes (Hospitalization)
  Sender: FDA-Public Use
  Company Number: FR-GLAXOSMITHKLINE-FR2015GSK088870

PATIENT
  Age: 69 Year
  Sex: Male

DRUGS (9)
  1. EZETROL [Concomitant]
     Active Substance: EZETIMIBE
  2. AMLOR [Concomitant]
     Active Substance: AMLODIPINE BESYLATE
  3. CARDENSIEL [Concomitant]
     Active Substance: BISOPROLOL FUMARATE
  4. OMEGA-3-ACID ETHYL ESTERS. [Suspect]
     Active Substance: OMEGA-3-ACID ETHYL ESTERS
     Indication: ISCHAEMIC HEART DISEASE PROPHYLAXIS
     Dosage: UNK
     Dates: start: 20090418
  5. DISCOTRINE [Concomitant]
     Active Substance: NITROGLYCERIN
  6. KARDEGIC [Concomitant]
     Active Substance: ASPIRIN LYSINE
  7. IKOREL [Concomitant]
     Active Substance: NICORANDIL
  8. LASILIX [Concomitant]
     Active Substance: FUROSEMIDE
  9. TICLID [Concomitant]
     Active Substance: TICLOPIDINE HYDROCHLORIDE

REACTIONS (1)
  - Rheumatic disorder [Unknown]

NARRATIVE: CASE EVENT DATE: 20140202
